FAERS Safety Report 6714639-1 (Version None)
Quarter: 2010Q2

REPORT INFORMATION
  Report Type: 
  Country: None (occurrence: None)
  Receive Date: 20100507
  Receipt Date: 20100429
  Transmission Date: 20101027
  Serious: No
  Sender: FDA-Public Use
  Company Number: 2009BI025446

PATIENT
  Sex: Female

DRUGS (1)
  1. TYSABRI [Suspect]
     Indication: MULTIPLE SCLEROSIS
     Route: 042
     Dates: start: 20070215

REACTIONS (15)
  - ABDOMINAL PAIN UPPER [None]
  - ANKLE FRACTURE [None]
  - BACK PAIN [None]
  - CRYING [None]
  - DEPRESSION [None]
  - FALL [None]
  - FATIGUE [None]
  - GAIT DISTURBANCE [None]
  - HAEMORRHAGE [None]
  - HEADACHE [None]
  - HYPOAESTHESIA [None]
  - MUSCULOSKELETAL PAIN [None]
  - PAIN IN EXTREMITY [None]
  - POOR QUALITY SLEEP [None]
  - VITAMIN D DECREASED [None]
